FAERS Safety Report 5132152-2 (Version None)
Quarter: 2006Q4

REPORT INFORMATION
  Report Type: 
  Country: None (occurrence: None)
  Receive Date: 20061017
  Receipt Date: 20061005
  Transmission Date: 20070319
  Serious: Yes (Hospitalization)
  Sender: FDA-Public Use
  Company Number: KADN20060037

PATIENT
  Age: 55 Year
  Sex: Male
  Weight: 76.6579 kg

DRUGS (5)
  1. KADIAN [Suspect]
     Indication: BACK PAIN
     Dosage: VAR DAILY; PO
     Route: 048
     Dates: start: 20060713, end: 20060829
  2. PROZAC [Suspect]
     Indication: DEPRESSION
     Dosage: 40 MG, DAILY; PO
     Route: 048
  3. XANAX [Suspect]
     Dosage: 2MG HS; PO
     Route: 048
  4. OXYCODONE HCL [Suspect]
     Indication: BREAKTHROUGH PAIN
     Dosage: 5-10 MG BID PRN, PO
     Route: 048
  5. LOPID [Concomitant]

REACTIONS (6)
  - COGNITIVE DISORDER [None]
  - DRUG WITHDRAWAL SYNDROME [None]
  - FATIGUE [None]
  - INTENTIONAL OVERDOSE [None]
  - SEDATION [None]
  - SUICIDE ATTEMPT [None]
